FAERS Safety Report 16365761 (Version 1)
Quarter: 2019Q2

REPORT INFORMATION
  Report Type: Spontaneous
  Country: US (occurrence: US)
  Receive Date: 20190529
  Receipt Date: 20190529
  Transmission Date: 20190711
  Serious: Yes (Life-Threatening, Hospitalization)
  Sender: FDA-Public Use
  Company Number: US-VELOXIS PHARMACEUTICALS, INC.-2019VELUS1540

PATIENT
  Age: 38 Year
  Sex: Female

DRUGS (2)
  1. ENVARSUS XR [Suspect]
     Active Substance: TACROLIMUS
     Indication: LUNG TRANSPLANT
     Dosage: UNK
     Route: 048
  2. CYCLOSPORINE. [Suspect]
     Active Substance: CYCLOSPORINE
     Indication: LUNG TRANSPLANT

REACTIONS (6)
  - Hyponatraemia [Unknown]
  - Clostridium difficile colitis [Unknown]
  - Bronchopulmonary aspergillosis [Unknown]
  - Posterior reversible encephalopathy syndrome [Recovering/Resolving]
  - Lung transplant rejection [Unknown]
  - Intentional product use issue [Unknown]
